FAERS Safety Report 6780137-2 (Version None)
Quarter: 2010Q2

REPORT INFORMATION
  Report Type: 
  Country: None (occurrence: None)
  Receive Date: 20100618
  Receipt Date: 20100607
  Transmission Date: 20101027
  Serious: Yes (Other)
  Sender: FDA-Public Use
  Company Number: US-ELI_LILLY_AND_COMPANY-US200907000897

PATIENT
  Sex: Female
  Weight: 83.9 kg

DRUGS (11)
  1. BYETTA [Suspect]
     Indication: TYPE 2 DIABETES MELLITUS
     Dosage: 5 UG, 2/D
     Route: 058
     Dates: start: 20060801, end: 20061201
  2. BYETTA [Suspect]
     Dosage: 10 UG, 2/D
     Route: 058
     Dates: start: 20061201, end: 20090101
  3. BYETTA [Suspect]
     Dosage: 10 UG, 2/D
     Route: 058
     Dates: start: 20090101, end: 20090601
  4. PLENDIL [Concomitant]
     Indication: HYPERTENSION
     Dosage: 5 MG, DAILY (1/D)
     Route: 048
  5. ATACAND [Concomitant]
     Indication: HYPERTENSION
     Dosage: 16 MG, DAILY (1/D)
     Route: 048
  6. ATACAND [Concomitant]
     Dosage: 32 MG, DAILY (1/D)
  7. SYNTHROID [Concomitant]
     Indication: HYPOTHYROIDISM
     Dosage: 0.75 MG, DAILY (1/D)
     Route: 048
  8. SYNTHROID [Concomitant]
     Dosage: 0.75 MG, DAILY (1/D)
     Route: 048
  9. FISH OIL [Concomitant]
     Dosage: UNK, DAILY (1/D)
     Route: 048
  10. HERBAL PREPARATION [Concomitant]
     Indication: DETOXIFICATION
     Dosage: UNK, UNKNOWN
     Dates: start: 20090701
  11. METFORMIN [Concomitant]
     Indication: DIABETES MELLITUS
     Dosage: 500 MG, 2/D

REACTIONS (6)
  - ENDOMETRIAL CANCER STAGE III [None]
  - FLUSHING [None]
  - HYPOTHERMIA [None]
  - OFF LABEL USE [None]
  - POST PROCEDURAL HAEMORRHAGE [None]
  - THYROID CANCER METASTATIC [None]
